FAERS Safety Report 6450743-3 (Version None)
Quarter: 2009Q4

REPORT INFORMATION
  Report Type: 
  Country: None (occurrence: None)
  Receive Date: 20091116
  Receipt Date: 20090827
  Transmission Date: 20100525
  Serious: Yes (Hospitalization)
  Sender: FDA-Public Use
  Company Number: WAES 0908USA04646

PATIENT
  Age: 52 Year
  Sex: Male

DRUGS (5)
  1. ISENTRESS [Suspect]
     Indication: HIV INFECTION
     Dosage: PO
     Route: 048
     Dates: start: 20090612
  2. PREZISTA [Suspect]
     Indication: HIV INFECTION
     Dates: start: 20090612
  3. INTELENCE [Suspect]
     Indication: HIV INFECTION
     Dosage: PO
     Route: 048
     Dates: start: 20090612
  4. RITONAVIR [Suspect]
     Dates: start: 20090612
  5. BACTRIM [Suspect]

REACTIONS (2)
  - RENAL FAILURE [None]
  - STEVENS-JOHNSON SYNDROME [None]
